FAERS Safety Report 5046655-2 (Version None)
Quarter: 2006Q3

REPORT INFORMATION
  Report Type: 
  Country: None (occurrence: None)
  Receive Date: 20060707
  Receipt Date: 20060707
  Transmission Date: 20061208
  Serious: Yes (Hospitalization)
  Sender: FDA-Public Use
  Company Number: None

PATIENT
  Age: 61 Year
  Sex: Male

DRUGS (23)
  1. WARFARIN SODIUM [Suspect]
     Indication: PULMONARY EMBOLISM
     Dosage: 5 MG QHS PO
     Route: 048
     Dates: start: 20060422, end: 20060706
  2. TYLENOL W/ CODEINE NO. 3 [Concomitant]
  3. ADVAIR DISKUS 100/50 [Concomitant]
  4. ASPIRIN [Concomitant]
  5. BENZATROPINE [Concomitant]
  6. COREG [Concomitant]
  7. PLAVIX [Concomitant]
  8. DOCUSATE [Concomitant]
  9. FLUOXETINE [Concomitant]
  10. HALOPERIDOL [Concomitant]
  11. IPRATROPIUM MDI [Concomitant]
  12. LEVOTHYROXINE SODIUM [Concomitant]
  13. METHOCARBAMOL [Concomitant]
  14. METOCLOPRAMIDE [Concomitant]
  15. NAPROSYN [Concomitant]
  16. NITROGLYCERIN [Concomitant]
  17. OMEPRAZOLE [Concomitant]
  18. SIMVASTATIN [Concomitant]
  19. SORBITOL [Concomitant]
  20. BISACODYL [Concomitant]
  21. PERCOCET [Concomitant]
  22. MS CONTIN [Concomitant]
  23. COUMADIN [Concomitant]

REACTIONS (3)
  - INCREASED TENDENCY TO BRUISE [None]
  - INTERNATIONAL NORMALISED RATIO DECREASED [None]
  - INTERNATIONAL NORMALISED RATIO INCREASED [None]
